FAERS Safety Report 9628717 (Version 3)
Quarter: 2014Q1

REPORT INFORMATION
  Report Type: Report from Study
  Country: DE (occurrence: DE)
  Receive Date: 20131017
  Receipt Date: 20140318
  Transmission Date: 20141002
  Serious: Yes (Hospitalization, Disabling)
  Sender: FDA-Public Use
  Company Number: DE-UCBSA-100427

PATIENT
  Sex: Female
  Weight: 75 kg

DRUGS (15)
  1. CERTOLIZUMAB PEGOL [Suspect]
     Indication: RHEUMATOID ARTHRITIS
     Route: 058
     Dates: start: 20110815, end: 201306
  2. PREDNISOLONE [Concomitant]
     Indication: RHEUMATOID ARTHRITIS
     Dosage: 6 MG DAILY
     Dates: start: 20090922, end: 20110921
  3. PREDNISOLONE [Concomitant]
     Indication: RHEUMATOID ARTHRITIS
     Dates: start: 20110922, end: 20120205
  4. PREDNISOLONE [Concomitant]
     Indication: RHEUMATOID ARTHRITIS
     Dates: start: 20120206, end: 20120926
  5. PREDNISOLONE [Concomitant]
     Indication: RHEUMATOID ARTHRITIS
     Dates: start: 20120927, end: 201311
  6. FOLCUR [Concomitant]
     Indication: DRUG TOXICITY PROPHYLAXIS
     Dosage: DOSE: 10 MG QS
     Dates: start: 20041118
  7. FOLCUR [Concomitant]
     Indication: DRUG TOXICITY PROPHYLAXIS
     Dosage: SUFFICIENT QUANTITY
     Dates: start: 20110303
  8. FERRO SANOL [Concomitant]
  9. METHOTREXATE [Concomitant]
     Indication: RHEUMATOID ARTHRITIS
     Dosage: DOSE: 20 MG QS
     Dates: start: 20041118
  10. METHOTREXATE [Concomitant]
     Indication: RHEUMATOID ARTHRITIS
     Dosage: SUFFICIENT QUANTITY
     Dates: start: 20110303, end: 20120205
  11. METHOTREXATE [Concomitant]
     Indication: RHEUMATOID ARTHRITIS
     Dosage: SUFFICIENT QUANTITY
     Dates: start: 20120206
  12. EUTHYROX [Concomitant]
     Indication: HYPOTHYROIDISM
     Dates: start: 20090330
  13. CALCIUM VITD [Concomitant]
     Indication: OSTEOPOROSIS PROPHYLAXIS
     Dates: start: 20091215, end: 20131007
  14. DICLOFENAC [Concomitant]
     Indication: RHEUMATOID ARTHRITIS
     Dates: start: 201306, end: 201309
  15. METAMIZOLE [Concomitant]
     Indication: RHEUMATOID ARTHRITIS
     Dates: start: 201306, end: 201309

REACTIONS (1)
  - Rheumatic disorder [Recovered/Resolved with Sequelae]
